FAERS Safety Report 17749291 (Version 2)
Quarter: 2020Q2

REPORT INFORMATION
  Report Type: Spontaneous
  Country: US (occurrence: US)
  Receive Date: 20200506
  Receipt Date: 20200525
  Transmission Date: 20200714
  Serious: No
  Sender: FDA-Public Use
  Company Number: US-HORIZON-TEP-0117-2020

PATIENT
  Age: 61 Year
  Sex: Male

DRUGS (2)
  1. TEPEZZA [Suspect]
     Active Substance: TEPROTUMUMAB-TRBW
     Indication: ENDOCRINE OPHTHALMOPATHY
     Dosage: EVERY 3 WEEKS
     Route: 042
     Dates: start: 20200327
  2. PREDNISONE. [Concomitant]
     Active Substance: PREDNISONE
     Indication: BASEDOW^S DISEASE

REACTIONS (2)
  - Back pain [Unknown]
  - Diarrhoea [Recovered/Resolved]
